FAERS Safety Report 4625506-1 (Version None)
Quarter: 2005Q2

REPORT INFORMATION
  Report Type: 
  Country: None (occurrence: None)
  Receive Date: 20050401
  Receipt Date: 20050324
  Transmission Date: 20051028
  Serious: Yes (Hospitalization)
  Sender: FDA-Public Use
  Company Number: CA-ABBOTT-05P-028-0295516-00

PATIENT
  Sex: Male
  Weight: 91.708 kg

DRUGS (4)
  1. MAVIK [Suspect]
     Indication: HYPERTENSION
     Route: 048
     Dates: start: 20040908, end: 20050310
  2. VENLAFAXINE HCL [Concomitant]
     Indication: DEPRESSION
     Route: 048
     Dates: start: 19990101
  3. CLONAZEPAM [Concomitant]
     Indication: ANXIETY
     Route: 048
     Dates: start: 20010101
  4. CYCLOBENZAPRINE HYDROCHLORIDE [Concomitant]
     Indication: MUSCLE TIGHTNESS
     Route: 048
     Dates: start: 20050310

REACTIONS (1)
  - MYOCARDIAL INFARCTION [None]
